FAERS Safety Report 12913786 (Version 1)
Quarter: 2016Q4

REPORT INFORMATION
  Report Type: Spontaneous
  Country: US (occurrence: US)
  Receive Date: 20161106
  Receipt Date: 20161106
  Transmission Date: 20170207
  Serious: No
  Sender: FDA-Public Use
  Company Number: US-RELYPSA-RLY2016000853

PATIENT
  Sex: Male

DRUGS (17)
  1. LANTUS [Concomitant]
     Active Substance: INSULIN GLARGINE
  2. LOMOTIL [Concomitant]
     Active Substance: ATROPINE SULFATE\DIPHENOXYLATE HYDROCHLORIDE
  3. METOPROLOL TARTRATE. [Concomitant]
     Active Substance: METOPROLOL TARTRATE
  4. SODIUM BICARBONATE. [Concomitant]
     Active Substance: SODIUM BICARBONATE
  5. ALLOPURINOL. [Concomitant]
     Active Substance: ALLOPURINOL
  6. PERCOCET [Concomitant]
     Active Substance: ACETAMINOPHEN\OXYCODONE HYDROCHLORIDE
  7. QUESTRAN [Concomitant]
     Active Substance: CHOLESTYRAMINE
  8. CRESTOR [Concomitant]
     Active Substance: ROSUVASTATIN CALCIUM
  9. PLAVIX [Concomitant]
     Active Substance: CLOPIDOGREL BISULFATE
  10. COUMADIN [Concomitant]
     Active Substance: WARFARIN SODIUM
  11. ZANAFLEX [Concomitant]
     Active Substance: TIZANIDINE HYDROCHLORIDE
  12. HUMALOG [Concomitant]
     Active Substance: INSULIN LISPRO
  13. HYDRALAZINE HCL [Concomitant]
     Active Substance: HYDRALAZINE HYDROCHLORIDE
  14. MAGNESIUM [Concomitant]
     Active Substance: MAGNESIUM
  15. VELTASSA [Suspect]
     Active Substance: PATIROMER
     Indication: HYPERKALAEMIA
     Dosage: 8.4 G, QD
     Route: 048
     Dates: start: 20160427
  16. AUGMENTIN [Concomitant]
     Active Substance: AMOXICILLIN\CLAVULANATE POTASSIUM
  17. VITAMIN D3 [Concomitant]
     Active Substance: CHOLECALCIFEROL

REACTIONS (2)
  - Drug dose omission [Unknown]
  - No adverse event [Unknown]

NARRATIVE: CASE EVENT DATE: 2016
